FAERS Safety Report 9967685 (Version 1)
Quarter: 2014Q1

REPORT INFORMATION
  Report Type: Spontaneous
  Country: IT (occurrence: IT)
  Receive Date: 20140305
  Receipt Date: 20140305
  Transmission Date: 20141002
  Serious: Yes (Other)
  Sender: FDA-Public Use
  Company Number: IT-MYLANLABS-2014S1004034

PATIENT
  Age: 70 Year
  Sex: Female
  Weight: 67 kg

DRUGS (1)
  1. PACLITAXEL [Suspect]
     Indication: BREAST CANCER STAGE IV
     Route: 042
     Dates: start: 20131104, end: 20140113

REACTIONS (1)
  - Erythema [Recovered/Resolved]
